FAERS Safety Report 19263647 (Version 1)
Quarter: 2021Q2

REPORT INFORMATION
  Report Type: Spontaneous
  Country: US (occurrence: US)
  Receive Date: 20210514
  Receipt Date: 20210514
  Transmission Date: 20210717
  Serious: Yes (Hospitalization)
  Sender: FDA-Public Use
  Company Number: None

PATIENT
  Sex: Female

DRUGS (1)
  1. INJECTAFER [Suspect]
     Active Substance: FERRIC CARBOXYMALTOSE
     Dosage: ?          OTHER FREQUENCY:X 2 DOSES WEEKLY;?
     Route: 042

REACTIONS (2)
  - Diarrhoea [None]
  - Hypophosphataemia [None]
